FAERS Safety Report 8743183 (Version 4)
Quarter: 2013Q2

REPORT INFORMATION
  Report Type: Spontaneous
  Country: US (occurrence: US)
  Receive Date: 20120824
  Receipt Date: 20130429
  Transmission Date: 20140414
  Serious: Yes (Hospitalization, Other)
  Sender: FDA-Public Use
  Company Number: US-009507513-1208USA008010

PATIENT
  Sex: Female
  Weight: 74.83 kg

DRUGS (1)
  1. NUVARING [Suspect]
     Indication: CONTRACEPTION
     Dosage: UNK
     Route: 067
     Dates: start: 200601, end: 20060519

REACTIONS (29)
  - Acute psychosis [Recovered/Resolved]
  - Deep vein thrombosis [Not Recovered/Not Resolved]
  - Post thrombotic syndrome [Unknown]
  - Psychotic disorder [Unknown]
  - Delusion [Unknown]
  - Personality disorder [Unknown]
  - Depression [Not Recovered/Not Resolved]
  - Anxiety [Not Recovered/Not Resolved]
  - Venous stent insertion [Unknown]
  - Venous stent insertion [Unknown]
  - Angioplasty [Unknown]
  - Varicose vein [Unknown]
  - Substance abuse [Recovered/Resolved]
  - Migraine [Unknown]
  - Treatment noncompliance [Unknown]
  - Schizophrenia [Recovered/Resolved]
  - Suicidal ideation [Recovered/Resolved]
  - Homicidal ideation [Recovered/Resolved]
  - Insomnia [Not Recovered/Not Resolved]
  - Pelvic pain [Not Recovered/Not Resolved]
  - Venous occlusion [Not Recovered/Not Resolved]
  - Mental disorder [Unknown]
  - Drug resistance [Unknown]
  - Deep vein thrombosis [Not Recovered/Not Resolved]
  - Chest pain [Unknown]
  - Irritable bowel syndrome [Unknown]
  - Urinary tract infection [Unknown]
  - Galactorrhoea [Unknown]
  - Adverse drug reaction [Unknown]
